FAERS Safety Report 14899314 (Version 1)
Quarter: 2018Q2

REPORT INFORMATION
  Report Type: Report from Study
  Country: None (occurrence: BR)
  Receive Date: 20180516
  Receipt Date: 20180516
  Transmission Date: 20180711
  Serious: Yes (Other)
  Sender: FDA-Public Use
  Company Number: BR-ABBVIE-18K-020-2352008-00

PATIENT
  Age: 58 Year
  Sex: Female
  Weight: 55 kg

DRUGS (4)
  1. ATENOLOL. [Concomitant]
     Active Substance: ATENOLOL
     Indication: HYPERTENSION
  2. METHOTREXATE. [Concomitant]
     Active Substance: METHOTREXATE
     Indication: ARTHRALGIA
  3. HUMIRA [Suspect]
     Active Substance: ADALIMUMAB
     Indication: RHEUMATOID ARTHRITIS
     Route: 058
     Dates: start: 20140815
  4. METHOTREXATE. [Concomitant]
     Active Substance: METHOTREXATE
     Indication: ARTHRITIS

REACTIONS (9)
  - Renal mass [Not Recovered/Not Resolved]
  - Gastritis [Unknown]
  - Blood urine present [Unknown]
  - Oesophagitis [Unknown]
  - Weight decreased [Not Recovered/Not Resolved]
  - Urinary tract infection [Recovered/Resolved]
  - Vitamin D decreased [Unknown]
  - Gastric haemorrhage [Unknown]
  - Fat tissue increased [Not Recovered/Not Resolved]

NARRATIVE: CASE EVENT DATE: 20140815
